FAERS Safety Report 22587654 (Version 1)
Quarter: 2023Q2

REPORT INFORMATION
  Report Type: Spontaneous
  Country: ES (occurrence: ES)
  Receive Date: 20230612
  Receipt Date: 20230612
  Transmission Date: 20230721
  Serious: Yes (Hospitalization, Other)
  Sender: FDA-Public Use
  Company Number: ES-AEMPS-1376213

PATIENT
  Age: 16 Year
  Sex: Female

DRUGS (3)
  1. ACETAMINOPHEN [Suspect]
     Active Substance: ACETAMINOPHEN
     Indication: Pyrexia
     Dosage: 1 GRAM, ONCE A DAY
     Route: 048
     Dates: start: 20221107, end: 20221128
  2. IBUPROFEN [Suspect]
     Active Substance: IBUPROFEN
     Indication: Febrile infection
     Dosage: 600 MILLIGRAM
     Route: 048
     Dates: start: 20221107, end: 20221128
  3. METAMIZOL [Suspect]
     Active Substance: METAMIZOLE SODIUM
     Indication: Febrile infection
     Dosage: 1.15 GRAM
     Route: 048
     Dates: start: 20221118, end: 20221118

REACTIONS (1)
  - Agranulocytosis [Recovered/Resolved]

NARRATIVE: CASE EVENT DATE: 20221205
